FAERS Safety Report 5528812-1 (Version None)
Quarter: 2007Q4

REPORT INFORMATION
  Report Type: 
  Country: None (occurrence: None)
  Receive Date: 20071119
  Receipt Date: 20070829
  Transmission Date: 20080405
  Serious: Yes (Other)
  Sender: FDA-Public Use
  Company Number: 40314

PATIENT
  Age: 18 Year
  Sex: Female
  Weight: 85.2762 kg

DRUGS (2)
  1. CHLOROPROCAINE INJ. USP 3% 600MG/20ML - BEDFORD LABS, INC. [Suspect]
     Indication: CAESAREAN SECTION
     Dosage: 20ML VIA EPIDURAL CATHETER
     Dates: start: 20070817
  2. BENZOCAINE [Concomitant]

REACTIONS (1)
  - DRUG INEFFECTIVE [None]
